FAERS Safety Report 6686255-1 (Version None)
Quarter: 2010Q2

REPORT INFORMATION
  Report Type: 
  Country: None (occurrence: None)
  Receive Date: 20100419
  Receipt Date: 20100409
  Transmission Date: 20101027
  Serious: Yes (Hospitalization)
  Sender: FDA-Public Use
  Company Number: JP-B.I. PHARMACEUTICALS,INC./RIDGEFIELD-2010-DE-01841GD

PATIENT
  Age: 69 Year
  Sex: Male

DRUGS (3)
  1. PRAMIPEXOLE DIHYDROCHLORIDE [Suspect]
     Indication: PARKINSON'S DISEASE
  2. L-DOPA[/DCI] [Concomitant]
     Indication: PARKINSON'S DISEASE
     Route: 048
  3. [L-DOPA/]DCI [Concomitant]
     Route: 048

REACTIONS (3)
  - ASTHENIA [None]
  - DECREASED APPETITE [None]
  - HYPONATRAEMIA [None]
